FAERS Safety Report 9926265 (Version 1)
Quarter: 2014Q1

REPORT INFORMATION
  Report Type: Spontaneous
  Country: US (occurrence: US)
  Receive Date: 20140226
  Receipt Date: 20140226
  Transmission Date: 20141002
  Serious: No
  Sender: FDA-Public Use
  Company Number: US-AMGEN-USASP2013081833

PATIENT
  Age: 61 Year
  Sex: Female
  Weight: 61.22 kg

DRUGS (10)
  1. ENBREL [Suspect]
     Indication: PRODUCT USED FOR UNKNOWN INDICATION
     Dosage: 50 MG, ONCE A WEEK
     Route: 058
  2. MULTIVITAMINS, PLAIN [Concomitant]
     Dosage: UNK
  3. VITAMIN D                          /00107901/ [Concomitant]
     Dosage: 1000 UNIT, UNK
  4. SUPER B COMPLEX                    /06817001/ [Concomitant]
     Dosage: UNK
  5. EVISTA [Concomitant]
     Dosage: 60 MG, UNK
  6. PRAVASTATIN [Concomitant]
     Dosage: 20 MG, UNK
  7. SYNTHROID [Concomitant]
     Dosage: 100 MUG, UNK
  8. HYDROXYCHLOROQUINE [Concomitant]
     Dosage: 200 MG, UNK
  9. PREDNISONE [Concomitant]
     Dosage: 5 MG, UNK
  10. ALEVE [Concomitant]
     Dosage: 220 MG, UNK

REACTIONS (1)
  - Injection site bruising [Unknown]
